FAERS Safety Report 7231809-7 (Version None)
Quarter: 2011Q1

REPORT INFORMATION
  Report Type: 
  Country: None (occurrence: None)
  Receive Date: 20110118
  Receipt Date: 20110107
  Transmission Date: 20110831
  Serious: Yes (Hospitalization)
  Sender: FDA-Public Use
  Company Number: US-ASTRAZENECA-2011SE01510

PATIENT
  Age: 12062 Day
  Sex: Male

DRUGS (6)
  1. REMERON [Concomitant]
     Dates: start: 20100604
  2. VISTARIL [Concomitant]
     Dosage: 50 MG BID PRN
     Route: 048
     Dates: start: 20100604
  3. SEROQUEL XR [Suspect]
     Route: 048
     Dates: start: 20100506
  4. SEROQUEL XR [Suspect]
     Route: 048
     Dates: start: 20100831
  5. REMERON [Concomitant]
     Dates: start: 20100506
  6. SEROQUEL XR [Suspect]
     Route: 048
     Dates: start: 20100730

REACTIONS (4)
  - CONVULSION [None]
  - INCORRECT DOSE ADMINISTERED [None]
  - MULTIPLE DRUG OVERDOSE INTENTIONAL [None]
  - SUBSTANCE ABUSE [None]
